FAERS Safety Report 15453488 (Version 13)
Quarter: 2024Q2

REPORT INFORMATION
  Report Type: Spontaneous
  Country: FR (occurrence: FR)
  Receive Date: 20181001
  Receipt Date: 20240528
  Transmission Date: 20240716
  Serious: Yes (Life-Threatening, Other)
  Sender: FDA-Public Use
  Company Number: None

PATIENT
  Age: 69 Year
  Sex: Male
  Weight: 66 kg

DRUGS (39)
  1. LANSOPRAZOLE [Suspect]
     Active Substance: LANSOPRAZOLE
     Indication: Product used for unknown indication
     Dosage: 1 DOSAGE FORM, QD
     Route: 065
  2. LANSOPRAZOLE [Suspect]
     Active Substance: LANSOPRAZOLE
     Dosage: UNK, QD
     Route: 065
  3. AMOXICILLIN [Suspect]
     Active Substance: AMOXICILLIN
     Indication: Infection
     Dosage: 1000 MILLIGRAM, QD
     Route: 048
     Dates: end: 201806
  4. DEXAMETHASONE ACETATE [Suspect]
     Active Substance: DEXAMETHASONE ACETATE
     Indication: Product used for unknown indication
     Dosage: 1 DOSAGE FORM, 1/WEEK
     Route: 065
  5. ACETAMINOPHEN [Suspect]
     Active Substance: ACETAMINOPHEN
     Indication: Product used for unknown indication
     Dosage: 3 DOSAGE FORM, QD
     Route: 065
  6. ACETAMINOPHEN [Suspect]
     Active Substance: ACETAMINOPHEN
     Dosage: 1 DOSAGE FORM, QD
     Route: 065
  7. ACETAMINOPHEN [Suspect]
     Active Substance: ACETAMINOPHEN
     Dosage: 1 DOSAGE FORM, TID
     Route: 065
  8. ELIQUIS [Suspect]
     Active Substance: APIXABAN
     Indication: Product used for unknown indication
     Dosage: 1 DOSAGE FORM, QD
     Route: 065
  9. ELIQUIS [Suspect]
     Active Substance: APIXABAN
     Dosage: 2 DOSAGE FORM, QD
     Route: 065
  10. ELIQUIS [Suspect]
     Active Substance: APIXABAN
     Dosage: 1 DOSAGE FORM, QD
     Route: 065
  11. ELIQUIS [Suspect]
     Active Substance: APIXABAN
     Dosage: 1 DOSAGE FORM, BID
     Route: 048
  12. ELIQUIS [Suspect]
     Active Substance: APIXABAN
     Dosage: 2 DOSAGE FORM, BID
     Route: 065
  13. ZOPICLONE [Suspect]
     Active Substance: ZOPICLONE
     Indication: Product used for unknown indication
     Dosage: 1 DOSAGE FORM, QD
     Route: 065
  14. ZOPICLONE [Suspect]
     Active Substance: ZOPICLONE
     Dosage: 1 DOSAGE FORM, QD
     Route: 065
  15. FOLIC ACID [Suspect]
     Active Substance: FOLIC ACID
     Indication: Product used for unknown indication
     Dosage: UNK
     Route: 065
  16. BACTRIM [Suspect]
     Active Substance: SULFAMETHOXAZOLE\TRIMETHOPRIM
     Indication: Pneumocystis jirovecii pneumonia
     Dosage: 1 DOSAGE FORM, QD
     Route: 048
     Dates: end: 201806
  17. BACTRIM [Suspect]
     Active Substance: SULFAMETHOXAZOLE\TRIMETHOPRIM
     Dosage: UNK UNK, TID
     Route: 065
  18. TRAMADOL HYDROCHLORIDE [Suspect]
     Active Substance: TRAMADOL HYDROCHLORIDE
     Indication: Pain
     Dosage: UNK UNK, QD
     Route: 065
  19. TRAMADOL HYDROCHLORIDE [Suspect]
     Active Substance: TRAMADOL HYDROCHLORIDE
     Dosage: 400 MILLIGRAM, QD
     Route: 048
     Dates: start: 201604, end: 201806
  20. TRAMADOL HYDROCHLORIDE [Suspect]
     Active Substance: TRAMADOL HYDROCHLORIDE
     Dosage: 200 MILLIGRAM, QD
     Route: 048
     Dates: end: 201806
  21. TRAMADOL HYDROCHLORIDE [Suspect]
     Active Substance: TRAMADOL HYDROCHLORIDE
     Dosage: UNK, TID
     Route: 048
  22. LACTULOSE [Suspect]
     Active Substance: LACTULOSE
     Indication: Product used for unknown indication
     Dosage: 2 DOSAGE FORM, QD
     Route: 065
  23. LACTULOSE [Suspect]
     Active Substance: LACTULOSE
     Dosage: UNK, QD
     Route: 065
  24. BACLOFEN [Suspect]
     Active Substance: BACLOFEN
     Indication: Product used for unknown indication
     Dosage: 2 DOSAGE FORM, TID
     Route: 065
  25. BACLOFEN [Suspect]
     Active Substance: BACLOFEN
     Dosage: 6 DOSAGE FORM, QD
     Route: 065
  26. BACLOFEN [Suspect]
     Active Substance: BACLOFEN
     Dosage: 1 DOSAGE FORM, QD
     Route: 065
  27. BACLOFEN [Suspect]
     Active Substance: BACLOFEN
     Dosage: UNK, BID
     Route: 065
  28. BACLOFEN [Suspect]
     Active Substance: BACLOFEN
     Dosage: UNK, TID
     Route: 065
  29. BACLOFEN [Suspect]
     Active Substance: BACLOFEN
     Dosage: UNK, QD
     Route: 065
  30. PREGABALIN [Suspect]
     Active Substance: PREGABALIN
     Indication: Product used for unknown indication
     Dosage: 2 DOSAGE FORM, QD
     Route: 065
  31. PREGABALIN [Suspect]
     Active Substance: PREGABALIN
     Dosage: 1 DOSAGE FORM, QD
     Route: 065
  32. PREGABALIN [Suspect]
     Active Substance: PREGABALIN
     Dosage: 1 DOSAGE FORM, Q12H
     Route: 065
  33. VESICARE [Suspect]
     Active Substance: SOLIFENACIN SUCCINATE
     Indication: Urinary incontinence
     Dosage: 10 MILLIGRAM, QD
     Route: 048
  34. VALACYCLOVIR HYDROCHLORIDE [Suspect]
     Active Substance: VALACYCLOVIR HYDROCHLORIDE
     Indication: Infection prophylaxis
     Dosage: 500 MILLIGRAM, QD
     Route: 048
     Dates: end: 201806
  35. APIXABAN [Suspect]
     Active Substance: APIXABAN
     Indication: Product used for unknown indication
     Dosage: 2 DOSAGE FORM, BID
     Route: 065
  36. APIXABAN [Suspect]
     Active Substance: APIXABAN
     Dosage: 1 DOSAGE FORM, QD
     Route: 065
  37. APIXABAN [Suspect]
     Active Substance: APIXABAN
     Dosage: 2 DOSAGE FORM, QD
     Route: 065
  38. APIXABAN [Suspect]
     Active Substance: APIXABAN
     Dosage: 1 DOSAGE FORM, QD
     Route: 048
  39. LEUCOVORIN CALCIUM [Suspect]
     Active Substance: LEUCOVORIN CALCIUM
     Indication: Product used for unknown indication
     Dosage: UNK
     Route: 065

REACTIONS (8)
  - Epilepsy [Recovered/Resolved]
  - Coma [Recovered/Resolved]
  - Drug intolerance [Unknown]
  - Overdose [Recovered/Resolved]
  - Off label use [Unknown]
  - Confusional state [Recovered/Resolved]
  - Somnolence [Recovered/Resolved]
  - Blood pressure decreased [Unknown]

NARRATIVE: CASE EVENT DATE: 20180607
